FAERS Safety Report 7759345-X (Version None)
Quarter: 2011Q3

REPORT INFORMATION
  Report Type: 
  Country: None (occurrence: None)
  Receive Date: 20110919
  Receipt Date: 20110908
  Transmission Date: 20111222
  Serious: Yes (Hospitalization)
  Sender: FDA-Public Use
  Company Number: CO-JNJFOC-20110902087

PATIENT
  Age: 54 Year
  Sex: Male
  Weight: 57 kg

DRUGS (4)
  1. METHOTREXATE [Concomitant]
     Indication: RHEUMATOID ARTHRITIS
     Route: 048
     Dates: start: 19980101
  2. PREDNISOLONE [Concomitant]
     Indication: RHEUMATOID ARTHRITIS
     Route: 048
     Dates: start: 19980101
  3. GOLIMUMAB [Suspect]
     Indication: RHEUMATOID ARTHRITIS
     Route: 058
     Dates: start: 20100916
  4. ACETAMINOPHEN W/ CODEINE [Concomitant]
     Indication: RHEUMATOID ARTHRITIS
     Dosage: 500/30 DAILY
     Route: 048
     Dates: start: 19980101

REACTIONS (2)
  - OESOPHAGEAL RUPTURE [None]
  - MEDIASTINITIS [None]
